FAERS Safety Report 5091959-0 (Version None)
Quarter: 2006Q3

REPORT INFORMATION
  Report Type: 
  Country: None (occurrence: None)
  Receive Date: 20060824
  Receipt Date: 20060810
  Transmission Date: 20061208
  Serious: No
  Sender: FDA-Public Use
  Company Number: 2006-145005-NL

PATIENT
  Sex: Female

DRUGS (1)
  1. ETONOGESTREL [Suspect]
     Dosage: DF;
     Dates: start: 20020101

REACTIONS (6)
  - IUD MIGRATION [None]
  - METRORRHAGIA [None]
  - POLYMENORRHOEA [None]
  - PROCEDURAL COMPLICATION [None]
  - SCAR [None]
  - WOUND INFECTION [None]
